FAERS Safety Report 9305063 (Version 2)
Quarter: 2013Q2

REPORT INFORMATION
  Report Type: Spontaneous
  Country: US (occurrence: US)
  Receive Date: 20130523
  Receipt Date: 20130620
  Transmission Date: 20140414
  Serious: No
  Sender: FDA-Public Use
  Company Number: US-009507513-1305USA011135

PATIENT
  Age: 61 Year
  Sex: Female
  Weight: 75.28 kg

DRUGS (3)
  1. VICTRELIS [Suspect]
     Indication: HEPATITIS C
     Dosage: 800 MG, TID
     Route: 048
     Dates: start: 2013
  2. RIBASPHERE [Suspect]
  3. PEGASYS [Suspect]

REACTIONS (1)
  - Ear infection [Recovered/Resolved]
